FAERS Safety Report 11348834 (Version 1)
Quarter: 2015Q3

REPORT INFORMATION
  Report Type: Report from Study
  Country: US (occurrence: US)
  Receive Date: 20150806
  Receipt Date: 20150806
  Transmission Date: 20151125
  Serious: No
  Sender: FDA-Public Use
  Company Number: US-AMGEN-USASP2015077311

PATIENT
  Sex: Male

DRUGS (1)
  1. ENBREL [Suspect]
     Active Substance: ETANERCEPT
     Indication: ACCIDENTAL EXPOSURE TO PRODUCT
     Dosage: UNK UNK, UNK
     Route: 065

REACTIONS (3)
  - Injury associated with device [Unknown]
  - Pain [Unknown]
  - Arthralgia [Unknown]
